FAERS Safety Report 9267810 (Version 1)
Quarter: 2013Q2

REPORT INFORMATION
  Report Type: Spontaneous
  Country: US (occurrence: US)
  Receive Date: 20130502
  Receipt Date: 20130502
  Transmission Date: 20140414
  Serious: Yes (Hospitalization)
  Sender: FDA-Public Use
  Company Number: US-ALEXION-A201201016

PATIENT
  Age: 75 Year
  Sex: Male

DRUGS (14)
  1. SOLIRIS 300MG [Suspect]
     Indication: PAROXYSMAL NOCTURNAL HAEMOGLOBINURIA
     Dosage: UNK
     Route: 042
  2. PREDNISONE [Concomitant]
     Indication: HAEMOLYSIS
     Dosage: 5 MG, ALTERNATE DAYS WITH 10 MG
     Route: 048
  3. PREDNISONE [Concomitant]
     Dosage: 10 MG, ALTERNATE DAYS WITH 5 MG
  4. PREDNISONE [Concomitant]
     Dosage: 40 MG, QD
     Route: 048
  5. CALCIUM [Concomitant]
     Indication: SUPPLEMENTATION THERAPY
     Dosage: 600 MG, QD
     Route: 048
  6. PRILOSEC [Concomitant]
     Indication: GASTROOESOPHAGEAL REFLUX DISEASE
     Dosage: 20 MG, QD
     Route: 048
  7. COUMADIN [Concomitant]
     Indication: PROPHYLAXIS
     Dosage: 5 MG, QD
     Route: 048
  8. FOLIC ACID [Concomitant]
     Indication: PAROXYSMAL NOCTURNAL HAEMOGLOBINURIA
     Dosage: 1 MG, QD
     Route: 048
  9. MEGESTROL [Concomitant]
     Indication: DECREASED APPETITE
     Dosage: UNK
     Route: 048
  10. POTASSIUM ER [Concomitant]
     Indication: SUPPLEMENTATION THERAPY
     Dosage: 20 MG, QD
     Route: 048
  11. VITAMIN D [Concomitant]
     Indication: SUPPLEMENTATION THERAPY
     Dosage: 1000 IU, QD
     Route: 048
  12. VITAMIN B12 [Concomitant]
     Indication: SUPPLEMENTATION THERAPY
     Dosage: UNK
     Route: 048
  13. VITAMIN B1 [Concomitant]
     Dosage: UNK, 1 TAB QD
  14. IRON [Concomitant]
     Dosage: 65 MG, QD

REACTIONS (4)
  - Haemolytic anaemia [Recovered/Resolved]
  - Fatigue [Recovering/Resolving]
  - Asthenia [Recovering/Resolving]
  - Haematuria [Recovered/Resolved]
